FAERS Safety Report 20560414 (Version 2)
Quarter: 2022Q1

REPORT INFORMATION
  Report Type: Report from Study
  Country: AR (occurrence: AR)
  Receive Date: 20220307
  Receipt Date: 20220321
  Transmission Date: 20220423
  Serious: Yes (Hospitalization)
  Sender: FDA-Public Use
  Company Number: AR-JNJFOC-20220258562

PATIENT
  Age: 79 Year
  Sex: Female
  Weight: 77 kg

DRUGS (4)
  1. ESKETAMINE [Suspect]
     Active Substance: ESKETAMINE
     Indication: Major depression
     Dates: start: 20171018
  2. ESKETAMINE [Suspect]
     Active Substance: ESKETAMINE
     Indication: Depression
     Dates: start: 20220309
  3. CLONAZEPAM [Concomitant]
     Active Substance: CLONAZEPAM
     Indication: Major depression
     Route: 048
  4. CLONAZEPAM [Concomitant]
     Active Substance: CLONAZEPAM
     Indication: Depression

REACTIONS (1)
  - Urinary tract infection [Recovered/Resolved]

NARRATIVE: CASE EVENT DATE: 20220213
